FAERS Safety Report 4760229-X (Version None)
Quarter: 2005Q3

REPORT INFORMATION
  Report Type: 
  Country: None (occurrence: None)
  Receive Date: 20050902
  Receipt Date: 20050825
  Transmission Date: 20060218
  Serious: Yes (Hospitalization)
  Sender: FDA-Public Use
  Company Number: US-JNJFOC-20050806190

PATIENT
  Sex: Female

DRUGS (2)
  1. LEVAQUIN [Suspect]
     Indication: KIDNEY INFECTION
  2. ULTRACET [Concomitant]
     Indication: PAIN

REACTIONS (2)
  - BENIGN INTRACRANIAL HYPERTENSION [None]
  - OPTIC NEURITIS [None]
